FAERS Safety Report 4531160-X (Version None)
Quarter: 2004Q4

REPORT INFORMATION
  Report Type: 
  Country: None (occurrence: None)
  Receive Date: 20041130
  Receipt Date: 20040607
  Transmission Date: 20050328
  Serious: Yes (Disabling)
  Sender: FDA-Public Use
  Company Number: WAES 0406USA00620

PATIENT
  Age: 58 Year
  Sex: Female

DRUGS (10)
  1. FOSAMAX [Suspect]
     Indication: OSTEOPOROSIS
     Dosage: 70MG/WKY/PO
     Route: 048
     Dates: start: 20030601
  2. BECONASE [Concomitant]
  3. DURA-VENT [Concomitant]
  4. EVISTA [Concomitant]
  5. NORVASC [Concomitant]
  6. ORUDIS [Concomitant]
  7. TOPROL-XL [Concomitant]
  8. TYLENOL W/ CODEINE NO. 4 [Concomitant]
  9. ZADITOR [Concomitant]
  10. ZYRTEC [Concomitant]

REACTIONS (3)
  - MYALGIA [None]
  - NAUSEA [None]
  - RASH [None]
